FAERS Safety Report 17474376 (Version 1)
Quarter: 2020Q1

REPORT INFORMATION
  Report Type: Report from Study
  Country: CO (occurrence: CO)
  Receive Date: 20200228
  Receipt Date: 20200228
  Transmission Date: 20200409
  Serious: Yes (Other)
  Sender: FDA-Public Use
  Company Number: CO-JNJFOC-20190740769

PATIENT
  Sex: Female
  Weight: 62 kg

DRUGS (2)
  1. METHOTREXATE. [Concomitant]
     Active Substance: METHOTREXATE
     Indication: PSORIATIC ARTHROPATHY
     Route: 058
  2. STELARA [Suspect]
     Active Substance: USTEKINUMAB
     Indication: PSORIATIC ARTHROPATHY
     Dosage: THE MOST RECENT DRUG ADMINISTRATION WAS PERFORMED ON 8/JUN/19.
     Route: 058
     Dates: start: 20150903

REACTIONS (4)
  - Drug ineffective [Unknown]
  - Skin plaque [Not Recovered/Not Resolved]
  - Chondropathy [Recovering/Resolving]
  - Carpal tunnel syndrome [Recovering/Resolving]

NARRATIVE: CASE EVENT DATE: 2015
